FAERS Safety Report 12360345 (Version 1)
Quarter: 2016Q2

REPORT INFORMATION
  Report Type: Spontaneous
  Country: US (occurrence: US)
  Receive Date: 20160512
  Receipt Date: 20160512
  Transmission Date: 20160815
  Serious: No
  Sender: FDA-Public Use
  Company Number: US-TARO-2015TAR01140

PATIENT
  Sex: Female

DRUGS (1)
  1. CLOTRIMAZOLE VAGINAL CREAM USP 2% 3 DAY [Suspect]
     Active Substance: CLOTRIMAZOLE
     Dosage: UNK UNK, ONCE
     Dates: start: 20151211

REACTIONS (5)
  - Anxiety [Not Recovered/Not Resolved]
  - Abdominal discomfort [Not Recovered/Not Resolved]
  - Flushing [Not Recovered/Not Resolved]
  - Palpitations [Not Recovered/Not Resolved]
  - Agitation [Not Recovered/Not Resolved]

NARRATIVE: CASE EVENT DATE: 20151212
